FAERS Safety Report 7258232-3 (Version None)
Quarter: 2011Q1

REPORT INFORMATION
  Report Type: 
  Country: None (occurrence: None)
  Receive Date: 20110129
  Receipt Date: 20100728
  Transmission Date: 20110831
  Serious: No
  Sender: FDA-Public Use
  Company Number: US-ABBOTT-10P-163-0660295-00

PATIENT
  Age: 53 Year
  Sex: Male

DRUGS (3)
  1. EFFIENT [Concomitant]
     Indication: ANTICOAGULANT THERAPY
     Dosage: DAILY
  2. SUPPLEMENTS [Concomitant]
     Indication: SUPPLEMENTATION THERAPY
     Dosage: DAILY
  3. HUMIRA [Suspect]
     Indication: PSORIATIC ARTHROPATHY
     Dates: start: 20100501

REACTIONS (3)
  - PSORIATIC ARTHROPATHY [None]
  - RASH PUSTULAR [None]
  - PRURITUS [None]
